FAERS Safety Report 9542644 (Version 1)
Quarter: 2013Q3

REPORT INFORMATION
  Report Type: Spontaneous
  Country: US (occurrence: US)
  Receive Date: 20130923
  Receipt Date: 20130923
  Transmission Date: 20140515
  Serious: No
  Sender: FDA-Public Use
  Company Number: US-PFIZER INC-2013268734

PATIENT
  Age: 54 Year
  Sex: 0

DRUGS (9)
  1. PROVERA [Suspect]
     Dosage: UNK
  2. DOXYCYCLINE HYCLATE [Suspect]
     Dosage: UNK
  3. PROMETHAZINE HCL [Suspect]
     Dosage: UNK
  4. DEPAKOTE [Suspect]
     Dosage: UNK
  5. INDOMETHACIN [Suspect]
     Dosage: UNK
  6. NAPROXEN [Suspect]
     Dosage: UNK
  7. PROCHLORPERAZINE [Suspect]
     Dosage: UNK
  8. TOPAMAX [Suspect]
     Dosage: UNK
  9. ZONEGRAN [Suspect]
     Dosage: UNK

REACTIONS (1)
  - Drug hypersensitivity [Unknown]
